FAERS Safety Report 5575904-7 (Version None)
Quarter: 2007Q4

REPORT INFORMATION
  Report Type: 
  Country: None (occurrence: None)
  Receive Date: 20071221
  Receipt Date: 20071205
  Transmission Date: 20080405
  Serious: Yes (Other)
  Sender: FDA-Public Use
  Company Number: 805#8#2007-00064

PATIENT
  Age: 28 Year
  Sex: Female

DRUGS (6)
  1. ALPROSTADIL [Suspect]
     Indication: DRUG USE FOR UNKNOWN INDICATION
     Dosage: 500 MCG; 60 MCG
     Route: 041
     Dates: start: 20070301, end: 20070301
  2. ALPROSTADIL [Suspect]
     Indication: DRUG USE FOR UNKNOWN INDICATION
     Dosage: 500 MCG; 60 MCG
     Route: 041
     Dates: start: 20070301, end: 20070301
  3. GABEXATE MESILATE (GABEXATE MESILATE) [Suspect]
     Indication: DRUG USE FOR UNKNOWN INDICATION
     Dosage: 2 MG
     Dates: start: 20070301
  4. TACROLIMUS [Concomitant]
  5. MYCOPHENOLATE MOFETIL [Concomitant]
  6. MARVELON (DESOGESTREL, ETHINYLESTRADIOL) [Concomitant]

REACTIONS (2)
  - HAEMOLYTIC URAEMIC SYNDROME [None]
  - THROMBOTIC THROMBOCYTOPENIC PURPURA [None]
